FAERS Safety Report 20058138 (Version 1)
Quarter: 2021Q4

REPORT INFORMATION
  Report Type: Report from Study
  Country: MX (occurrence: MX)
  Receive Date: 20211111
  Receipt Date: 20211111
  Transmission Date: 20220303
  Serious: Yes (Other)
  Sender: FDA-Public Use
  Company Number: MX-NOVARTISPH-NVSC2021MX108495

PATIENT
  Sex: Female
  Weight: 71 kg

DRUGS (2)
  1. HYDROCHLOROTHIAZIDE\VALSARTAN [Suspect]
     Active Substance: HYDROCHLOROTHIAZIDE\VALSARTAN
     Indication: Hypertension
     Dosage: 1 DF (160/12.5 MG), QD, AROUND 4 YEARS AGO
     Route: 048
     Dates: start: 2017
  2. HYDROCHLOROTHIAZIDE\VALSARTAN [Suspect]
     Active Substance: HYDROCHLOROTHIAZIDE\VALSARTAN
     Dosage: 1 DF (80/12.5 MG), BID
     Route: 048
     Dates: start: 202102, end: 202105

REACTIONS (5)
  - Hypothyroidism [Unknown]
  - Dehydration [Unknown]
  - Blood pressure fluctuation [Unknown]
  - Blood pressure increased [Recovering/Resolving]
  - Inappropriate schedule of product administration [Recovered/Resolved]

NARRATIVE: CASE EVENT DATE: 20170101
